FAERS Safety Report 13348870 (Version 3)
Quarter: 2017Q2

REPORT INFORMATION
  Report Type: Report from Study
  Country: US (occurrence: US)
  Receive Date: 20170320
  Receipt Date: 20170531
  Transmission Date: 20170830
  Serious: Yes (Hospitalization, Other)
  Sender: FDA-Public Use
  Company Number: US-GILEAD-2017-0262453

PATIENT
  Age: 34 Year
  Sex: Female

DRUGS (16)
  1. FERREX [Concomitant]
     Dates: start: 20170313
  2. AMIODARONE [Concomitant]
     Active Substance: AMIODARONE
     Dates: start: 20170313
  3. AMBRISENTAN [Suspect]
     Active Substance: AMBRISENTAN
     Indication: PULMONARY HYPERTENSION
     Dosage: 10 MG, QD
     Route: 065
     Dates: start: 20150529, end: 20170426
  4. TORSEMIDE. [Concomitant]
     Active Substance: TORSEMIDE
     Dates: start: 20170313
  5. ZOLOFT [Concomitant]
     Active Substance: SERTRALINE HYDROCHLORIDE
     Dates: start: 20170313
  6. SPIRONOLACTONE. [Concomitant]
     Active Substance: SPIRONOLACTONE
     Dates: start: 20170313
  7. MAG OXIDE [Concomitant]
     Active Substance: MAGNESIUM OXIDE
     Dates: start: 20170313
  8. CLONAZEPAM. [Concomitant]
     Active Substance: CLONAZEPAM
     Dates: start: 20170313
  9. ADEMPAS [Concomitant]
     Active Substance: RIOCIGUAT
     Dates: start: 20170313
  10. FOLIC ACID. [Concomitant]
     Active Substance: FOLIC ACID
     Dates: start: 20170313
  11. NASONEX [Concomitant]
     Active Substance: MOMETASONE FUROATE
     Dates: start: 20170313
  12. ADVAIR HFA [Concomitant]
     Active Substance: FLUTICASONE PROPIONATE\SALMETEROL XINAFOATE
     Dates: start: 20170313
  13. XANAX [Concomitant]
     Active Substance: ALPRAZOLAM
     Dates: start: 20170313
  14. ZOFRAN [Concomitant]
     Active Substance: ONDANSETRON HYDROCHLORIDE
     Dates: start: 20170313
  15. OXYCODONE [Concomitant]
     Active Substance: OXYCODONE
     Dates: start: 20170313
  16. PANTOPRAZOLE [Concomitant]
     Active Substance: PANTOPRAZOLE
     Dates: start: 20170313

REACTIONS (4)
  - Lung transplant [Recovered/Resolved]
  - Fluid retention [Unknown]
  - Cardiac disorder [Unknown]
  - Dyspnoea [Unknown]

NARRATIVE: CASE EVENT DATE: 20170426
